FAERS Safety Report 17764071 (Version 3)
Quarter: 2025Q2

REPORT INFORMATION
  Report Type: Spontaneous
  Country: IT (occurrence: IT)
  Receive Date: 20200511
  Receipt Date: 20250428
  Transmission Date: 20250717
  Serious: Yes (Other)
  Sender: AUROBINDO
  Company Number: IT-TEVA-2020-IT-1227970

PATIENT
  Age: 30 Year
  Sex: Female

DRUGS (8)
  1. TOPIRAMATE [Suspect]
     Active Substance: TOPIRAMATE
     Indication: Migraine prophylaxis
     Route: 048
     Dates: start: 2018
  2. TOPIRAMATE [Suspect]
     Active Substance: TOPIRAMATE
     Indication: Migraine
  3. AMITRIPTYLINE [Suspect]
     Active Substance: AMITRIPTYLINE
     Indication: Migraine prophylaxis
     Route: 048
  4. PREDNISONE [Suspect]
     Active Substance: PREDNISONE
     Indication: Myasthenia gravis
     Route: 065
  5. LANREOTIDE [Concomitant]
     Active Substance: LANREOTIDE
     Indication: Thymoma
     Route: 065
  6. AZATHIOPRINE [Concomitant]
     Active Substance: AZATHIOPRINE
     Indication: Myasthenia gravis
     Route: 065
  7. ERENUMAB [Concomitant]
     Active Substance: ERENUMAB
     Indication: Migraine
     Route: 065
  8. ERENUMAB [Concomitant]
     Active Substance: ERENUMAB
     Route: 065

REACTIONS (9)
  - Obesity [Unknown]
  - Cataract [Unknown]
  - Cushing^s syndrome [Unknown]
  - Osteoporosis [Unknown]
  - Adverse drug reaction [Unknown]
  - Treatment failure [Recovered/Resolved]
  - Abdominal pain upper [Recovered/Resolved]
  - Cholelithiasis [Recovered/Resolved]
  - Insomnia [Recovered/Resolved]
